FAERS Safety Report 8092912-5 (Version None)
Quarter: 2012Q1

REPORT INFORMATION
  Report Type: 
  Country: None (occurrence: None)
  Receive Date: 20120128
  Receipt Date: 20110804
  Transmission Date: 20120608
  Serious: No
  Sender: FDA-Public Use
  Company Number: US-ABBOTT-11P-163-0844221-00

PATIENT
  Age: 59 Year
  Sex: Female

DRUGS (6)
  1. WELLBUTRIN [Concomitant]
     Indication: DEPRESSION
  2. PRILOSEC [Concomitant]
     Indication: GASTROOESOPHAGEAL REFLUX DISEASE
  3. METHOTREXATE [Concomitant]
     Indication: RHEUMATOID ARTHRITIS
  4. HUMIRA [Suspect]
     Indication: RHEUMATOID ARTHRITIS
     Dates: start: 20110707
  5. TRAMADOL HCL [Concomitant]
     Indication: ARTHRALGIA
  6. FOLIC ACID [Concomitant]
     Indication: PRODUCT USED FOR UNKNOWN INDICATION
     Dosage: WITH METHOTREXATE

REACTIONS (3)
  - INCORRECT DOSE ADMINISTERED [None]
  - DRUG ADMINISTRATION ERROR [None]
  - INJECTION SITE PAIN [None]
